FAERS Safety Report 26060449 (Version 1)
Quarter: 2025Q4

REPORT INFORMATION
  Report Type: Spontaneous
  Country: RU (occurrence: RU)
  Receive Date: 20251118
  Receipt Date: 20251118
  Transmission Date: 20260117
  Serious: Yes (Other)
  Sender: FRESENIUS KABI
  Company Number: RU-FreseniusKabi-FK202515340

PATIENT
  Age: 65 Year
  Sex: Female
  Weight: 68 kg

DRUGS (4)
  1. PROPOFOL [Suspect]
     Active Substance: PROPOFOL
     Indication: Anaesthesia
     Dosage: FOA: EMULSION?SINGLE DOSE: 200 MG
     Route: 040
     Dates: start: 20250814, end: 20250814
  2. CISATRACURIUM BESYLATE [Suspect]
     Active Substance: CISATRACURIUM BESYLATE
     Indication: Anaesthesia
     Dosage: DOSAGE FREQUENCY: 1 ?DOSAGE FORM: SOLUTION
     Route: 040
     Dates: start: 20250814, end: 20250814
  3. DIAZEPAM [Suspect]
     Active Substance: DIAZEPAM
     Indication: Anaesthesia
     Dosage: DOSAGE FREQUENCY: 1 ?DOSAGE FORM: INTRAVENOUS AND INTRAMUSCULAR SOLUTION?ROA: INTRAVENOUS BOLUS
     Dates: start: 20250814, end: 20250814
  4. FENTANYL [Suspect]
     Active Substance: FENTANYL
     Indication: Anaesthesia
     Dosage: DOSAGE FREQUENCY: 1 ?DOSAGE FORM: SOLUTION
     Route: 040
     Dates: start: 20250814, end: 20250814

REACTIONS (1)
  - Anaphylactic shock [Recovered/Resolved]

NARRATIVE: CASE EVENT DATE: 20250814
